FAERS Safety Report 9619749 (Version 1)
Quarter: 2013Q4

REPORT INFORMATION
  Report Type: Spontaneous
  Country: US (occurrence: US)
  Receive Date: 20131014
  Receipt Date: 20131014
  Transmission Date: 20140711
  Serious: Yes (Hospitalization)
  Sender: FDA-Public Use
  Company Number: US-GLAXOSMITHKLINE-A1045295A

PATIENT
  Age: 62 Year
  Sex: Male

DRUGS (9)
  1. VOTRIENT [Suspect]
     Indication: RENAL CANCER
     Dosage: 800MG PER DAY
     Route: 048
     Dates: start: 20130412
  2. HYDROCODONE ACETAMINOPHEN [Concomitant]
  3. CLONIDINE [Concomitant]
  4. NORVASC [Concomitant]
  5. PANTOPRAZOLE [Concomitant]
  6. LEVOTHYROXINE [Concomitant]
  7. AMLODIPINE [Concomitant]
  8. ATORVASTATIN [Concomitant]
  9. LISINOPRIL [Concomitant]

REACTIONS (1)
  - Hospitalisation [Unknown]
